FAERS Safety Report 11704050 (Version 1)
Quarter: 2015Q4

REPORT INFORMATION
  Report Type: Spontaneous
  Country: US (occurrence: US)
  Receive Date: 20151106
  Receipt Date: 20151106
  Transmission Date: 20160304
  Serious: Yes (Other)
  Sender: FDA-Public Use
  Company Number: US-TEVA-606816ACC

PATIENT
  Sex: Female
  Weight: 85.81 kg

DRUGS (1)
  1. PARAGARD T 380A [Suspect]
     Active Substance: COPPER
     Indication: CONTRACEPTION
     Dates: start: 20151023, end: 20151030

REACTIONS (3)
  - Muscle spasms [Recovered/Resolved]
  - Device dislocation [Recovered/Resolved]
  - Discomfort [Recovered/Resolved]
